FAERS Safety Report 16839027 (Version 2)
Quarter: 2021Q1

REPORT INFORMATION
  Report Type: Report from Study
  Country: GB (occurrence: GB)
  Receive Date: 20190923
  Receipt Date: 20210114
  Transmission Date: 20210419
  Serious: Yes (Other)
  Sender: FDA-Public Use
  Company Number: GB-PFIZER INC-2019396412

PATIENT

DRUGS (2)
  1. METHYLPREDNISOLONE SODIUM SUCCINATE. [Suspect]
     Active Substance: METHYLPREDNISOLONE SODIUM SUCCINATE
     Indication: CORNEAL FLAP COMPLICATION
     Dosage: UNK
     Route: 042
  2. METHYLPREDNISOLONE SODIUM SUCCINATE. [Suspect]
     Active Substance: METHYLPREDNISOLONE SODIUM SUCCINATE
     Indication: KERATOPLASTY

REACTIONS (1)
  - Loss of consciousness [Unknown]
